FAERS Safety Report 7791792-2 (Version None)
Quarter: 2011Q4

REPORT INFORMATION
  Report Type: 
  Country: None (occurrence: None)
  Receive Date: 20111003
  Receipt Date: 20110927
  Transmission Date: 20120403
  Serious: No
  Sender: FDA-Public Use
  Company Number: US-PFIZER INC-2011201661

PATIENT
  Sex: Female
  Weight: 52.608 kg

DRUGS (8)
  1. LISINOPRIL [Suspect]
     Dosage: UNK
     Dates: start: 20060401
  2. SYNTHROID [Concomitant]
     Indication: HYPOTHYROIDISM
  3. PREMARIN [Concomitant]
     Indication: HORMONE REPLACEMENT THERAPY
     Dosage: 1.25 MG, UNK
     Dates: start: 20110101
  4. LISINOPRIL [Suspect]
     Dosage: UNK
     Dates: start: 20070210
  5. TRIAMTERENE [Suspect]
     Dosage: UNK
     Dates: start: 20060622
  6. SYNTHROID [Concomitant]
     Indication: THYROID DISORDER
     Dosage: 0.088 MG, UNK
     Dates: start: 20050101
  7. NIFEDIPINE [Suspect]
     Dosage: 10 MG, 1X/DAY
     Dates: start: 20060429
  8. TRIAMTERENE AND HYDROCHLOROTHIAZIDE [Suspect]
     Dosage: 3.75 MG, UNK
     Dates: start: 20070601

REACTIONS (11)
  - DIZZINESS [None]
  - HEADACHE [None]
  - PALPITATIONS [None]
  - DRUG HYPERSENSITIVITY [None]
  - SWELLING FACE [None]
  - FEELING ABNORMAL [None]
  - FEELING JITTERY [None]
  - NAUSEA [None]
  - HYPERSENSITIVITY [None]
  - DISORIENTATION [None]
  - DYSPNOEA [None]
